FAERS Safety Report 19710266 (Version 1)
Quarter: 2021Q3

REPORT INFORMATION
  Report Type: Spontaneous
  Country: CA (occurrence: CA)
  Receive Date: 20210816
  Receipt Date: 20210816
  Transmission Date: 20211014
  Serious: Yes (Other)
  Sender: FDA-Public Use
  Company Number: CA-SAMSUNG BIOEPIS-SB-2021-18950

PATIENT
  Age: 76 Year
  Sex: Male

DRUGS (2)
  1. ETANERCEPT [Suspect]
     Active Substance: ETANERCEPT
     Indication: ACUTE GENERALISED EXANTHEMATOUS PUSTULOSIS
     Dosage: SINGLE DOSE
     Route: 058
  2. ETANERCEPT [Suspect]
     Active Substance: ETANERCEPT
     Indication: TOXIC EPIDERMAL NECROLYSIS

REACTIONS (4)
  - Proteus infection [Unknown]
  - Electrolyte imbalance [Unknown]
  - Citrobacter infection [Unknown]
  - Off label use [Unknown]
